FAERS Safety Report 7468540-9 (Version None)
Quarter: 2011Q2

REPORT INFORMATION
  Report Type: 
  Country: None (occurrence: None)
  Receive Date: 20110509
  Receipt Date: 20110428
  Transmission Date: 20111010
  Serious: Yes (Life-Threatening)
  Sender: FDA-Public Use
  Company Number: GB-BAYER-2011-038307

PATIENT
  Age: 83 Year
  Sex: Female

DRUGS (17)
  1. CARBOCISTEINE [Concomitant]
  2. FERROUS SULFATE TAB [Concomitant]
  3. ALBUTEROL SULFATE AUTOHALER [Concomitant]
  4. GAVISCON [Concomitant]
  5. OMEPRAZOLE [Concomitant]
  6. FRAGMIN [Concomitant]
  7. IPRATROPIUM BROMIDE [Concomitant]
  8. AZTREONAM [Concomitant]
  9. DIPYRIDAMOLE [Concomitant]
  10. CIPROFLOXACIN HYDROCHLORIDE [Suspect]
     Indication: PNEUMONIA
     Dosage: 750 MG, BID
     Route: 048
     Dates: start: 20110407, end: 20110408
  11. FLUOXETINE [Concomitant]
  12. AMIODARONE [Concomitant]
  13. ASPIRIN [Concomitant]
  14. GALANTAMINE HYDROBROMIDE [Concomitant]
  15. TPN [Concomitant]
  16. ACETAMINOPHEN [Concomitant]
  17. BECLOMETHASONE [Concomitant]

REACTIONS (2)
  - HYPOGLYCAEMIA [None]
  - ELECTROCARDIOGRAM T WAVE INVERSION [None]
